FAERS Safety Report 17385950 (Version 1)
Quarter: 2020Q1

REPORT INFORMATION
  Report Type: Spontaneous
  Country: US (occurrence: US)
  Receive Date: 20200206
  Receipt Date: 20200206
  Transmission Date: 20200409
  Serious: No
  Sender: FDA-Public Use
  Company Number: US-ABBVIE-19K-163-2930101-00

PATIENT
  Age: 59 Year
  Sex: Female
  Weight: 70.87 kg

DRUGS (3)
  1. HUMIRA [Suspect]
     Active Substance: ADALIMUMAB
     Route: 058
     Dates: start: 20190717
  2. HUMIRA [Suspect]
     Active Substance: ADALIMUMAB
     Route: 058
  3. HUMIRA [Suspect]
     Active Substance: ADALIMUMAB
     Indication: COLITIS ULCERATIVE
     Route: 058
     Dates: start: 20190703, end: 20190703

REACTIONS (7)
  - Immunodeficiency [Not Recovered/Not Resolved]
  - Panic reaction [Recovered/Resolved]
  - Sinusitis [Recovering/Resolving]
  - Wrong technique in product usage process [Unknown]
  - Nasopharyngitis [Recovering/Resolving]
  - Crying [Recovered/Resolved]
  - Therapeutic product effect incomplete [Not Recovered/Not Resolved]

NARRATIVE: CASE EVENT DATE: 201907
